FAERS Safety Report 9188145 (Version 1)
Quarter: 2013Q1

REPORT INFORMATION
  Report Type: Spontaneous
  Country: GB (occurrence: GB)
  Receive Date: 20130325
  Receipt Date: 20130325
  Transmission Date: 20140127
  Serious: Yes (Other)
  Sender: FDA-Public Use
  Company Number: PHHY2013GB027296

PATIENT
  Age: 60 Year
  Sex: Female
  Weight: 81 kg

DRUGS (9)
  1. FLUOXETINE [Suspect]
     Indication: DEPRESSION
     Dosage: 20 MG, UNK
     Route: 048
     Dates: start: 20120526, end: 20130304
  2. SERTRALINE [Concomitant]
     Dosage: 50 MG, QD
     Route: 048
  3. FROBEN [Concomitant]
     Dosage: 100 MG, TID
     Route: 048
  4. YELLOX [Concomitant]
     Dosage: 1 DF, UNK
     Route: 047
  5. ATROPINE [Concomitant]
     Route: 047
  6. STRONTIUM RANELATE [Concomitant]
     Dosage: 2 G, QD
  7. OMEPRAZOLE [Concomitant]
     Dosage: 20 MG, QD
     Route: 048
  8. CARDIOPLEN XL [Concomitant]
     Dosage: 5 MG, QD
     Route: 048
  9. CALCICHEW D3 [Concomitant]
     Dosage: 1 DF, BID
     Route: 048

REACTIONS (2)
  - Iritis [Not Recovered/Not Resolved]
  - Uveitis [Not Recovered/Not Resolved]
